FAERS Safety Report 19056687 (Version 1)
Quarter: 2021Q1

REPORT INFORMATION
  Report Type: Spontaneous
  Country: GB (occurrence: GB)
  Receive Date: 20210325
  Receipt Date: 20210325
  Transmission Date: 20210420
  Serious: Yes (Other)
  Sender: FDA-Public Use
  Company Number: GB-MYLANLABS-2021M1016347

PATIENT
  Age: 44 Year
  Sex: Male
  Weight: 77 kg

DRUGS (2)
  1. PROPRANOLOL [Concomitant]
     Active Substance: PROPRANOLOL HYDROCHLORIDE
     Dosage: ONE TABLET UP TO THREE TIMES A DAY
     Dates: start: 20210301
  2. SERTRALINE [Suspect]
     Active Substance: SERTRALINE HYDROCHLORIDE
     Indication: PRODUCT USED FOR UNKNOWN INDICATION
     Dosage: ONE TO BE TAKEN EACH DAY
     Dates: start: 20210301

REACTIONS (1)
  - Violence-related symptom [Recovered/Resolved]

NARRATIVE: CASE EVENT DATE: 20210301
